FAERS Safety Report 17745144 (Version 2)
Quarter: 2020Q2

REPORT INFORMATION
  Report Type: Report from Study
  Country: None (occurrence: US)
  Receive Date: 20200504
  Receipt Date: 20200505
  Transmission Date: 20200714
  Serious: Yes (Other)
  Sender: FDA-Public Use
  Company Number: US-ABBVIE-20K-163-3389232-00

PATIENT
  Sex: Female

DRUGS (1)
  1. RINVOQ [Suspect]
     Active Substance: UPADACITINIB
     Indication: RHEUMATOID ARTHRITIS
     Dosage: AS DIRECTED
     Route: 048

REACTIONS (4)
  - Skin cancer [Not Recovered/Not Resolved]
  - Infection [Not Recovered/Not Resolved]
  - Rash [Not Recovered/Not Resolved]
  - Cellulitis [Not Recovered/Not Resolved]

NARRATIVE: CASE EVENT DATE: 2020
